FAERS Safety Report 25844664 (Version 1)
Quarter: 2025Q3

REPORT INFORMATION
  Report Type: Spontaneous
  Country: US (occurrence: US)
  Receive Date: 20250925
  Receipt Date: 20250925
  Transmission Date: 20251020
  Serious: No
  Sender: STALLERGENES
  Company Number: US-STALCOR-2025-AER-02641

PATIENT
  Age: 10 Year
  Sex: Male

DRUGS (6)
  1. ALTERNARIA [Suspect]
     Active Substance: ALTERNARIA ALTERNATA
     Indication: Product used for unknown indication
     Route: 058
  2. BETULA NIGRA POLLEN [Suspect]
     Active Substance: BETULA NIGRA POLLEN
     Indication: Product used for unknown indication
     Route: 058
  3. POPULUS NIGRA POLLEN [Suspect]
     Active Substance: POPULUS NIGRA POLLEN
     Indication: Product used for unknown indication
     Route: 058
  4. HACKBERRY POLLEN [Suspect]
     Active Substance: CELTIS OCCIDENTALIS POLLEN
     Indication: Product used for unknown indication
     Route: 058
  5. LOLIUM PERENNE POLLEN [Suspect]
     Active Substance: LOLIUM PERENNE POLLEN
     Indication: Product used for unknown indication
     Route: 058
  6. JOHNSON GRASS [Suspect]
     Active Substance: SORGHUM HALEPENSE POLLEN
     Indication: Product used for unknown indication
     Route: 058

REACTIONS (1)
  - Local reaction [Recovered/Resolved]

NARRATIVE: CASE EVENT DATE: 20250826
